FAERS Safety Report 5340463-0 (Version None)
Quarter: 2007Q2

REPORT INFORMATION
  Report Type: 
  Country: None (occurrence: None)
  Receive Date: 20070531
  Receipt Date: 20070521
  Transmission Date: 20071010
  Serious: Yes (Other)
  Sender: FDA-Public Use
  Company Number: DE-PFIZER INC-2007037738

PATIENT
  Sex: Male
  Weight: 85 kg

DRUGS (9)
  1. LYRICA [Suspect]
     Indication: DEPRESSION
     Dosage: DAILY DOSE:75MG
     Route: 048
  2. LYRICA [Suspect]
     Indication: GENERALISED ANXIETY DISORDER
  3. SEROQUEL [Concomitant]
     Route: 048
  4. RISPERDAL [Concomitant]
     Route: 048
  5. JATROSOM [Concomitant]
     Route: 048
  6. TAVOR [Concomitant]
  7. STILNOX [Concomitant]
  8. PANTOZOL [Concomitant]
  9. THYRONAJOD [Concomitant]

REACTIONS (1)
  - EXTRASYSTOLES [None]
